FAERS Safety Report 7457974-4 (Version None)
Quarter: 2011Q2

REPORT INFORMATION
  Report Type: 
  Country: None (occurrence: None)
  Receive Date: 20110503
  Receipt Date: 20110503
  Transmission Date: 20111010
  Serious: Yes (Hospitalization)
  Sender: FDA-Public Use
  Company Number: None

PATIENT
  Age: 19 Year
  Sex: Female
  Weight: 70 kg

DRUGS (2)
  1. GAMMAGARD [Suspect]
     Indication: GUILLAIN-BARRE SYNDROME
     Dosage: 140 GRAMS ONCE IV
     Route: 042
     Dates: start: 20110429, end: 20110429
  2. GAMMAGARD [Suspect]

REACTIONS (1)
  - HAEMOLYTIC ANAEMIA [None]
